FAERS Safety Report 6552557-2 (Version None)
Quarter: 2010Q1

REPORT INFORMATION
  Report Type: 
  Country: None (occurrence: None)
  Receive Date: 20100126
  Receipt Date: 20100115
  Transmission Date: 20100710
  Serious: Yes (Death)
  Sender: FDA-Public Use
  Company Number: US-JNJCH-2010001811

PATIENT
  Age: 30 Year
  Sex: Female

DRUGS (2)
  1. DIPHENHYDRAMINE [Suspect]
     Indication: DRUG USE FOR UNKNOWN INDICATION
     Dosage: TEXT:UNKNOWN
     Route: 048
  2. CLONIDINE [Suspect]
     Indication: DRUG USE FOR UNKNOWN INDICATION
     Dosage: TEXT:UNKNOWN
     Route: 048

REACTIONS (2)
  - DRUG TOXICITY [None]
  - INTENTIONAL DRUG MISUSE [None]
